FAERS Safety Report 6729337-8 (Version None)
Quarter: 2010Q2

REPORT INFORMATION
  Report Type: 
  Country: None (occurrence: None)
  Receive Date: 20100517
  Receipt Date: 20100512
  Transmission Date: 20101027
  Serious: No
  Sender: FDA-Public Use
  Company Number: US-ABBOTT-10P-163-0643875-00

PATIENT
  Sex: Male
  Weight: 102.15 kg

DRUGS (1)
  1. SIMCOR [Suspect]
     Indication: DYSLIPIDAEMIA
     Dosage: 500/20
     Route: 048
     Dates: start: 20100501, end: 20100511

REACTIONS (3)
  - ARTHRITIS [None]
  - JOINT SWELLING [None]
  - MUSCLE TIGHTNESS [None]
